FAERS Safety Report 8831031 (Version 2)
Quarter: 2012Q4

REPORT INFORMATION
  Report Type: 
  Country: US (occurrence: US)
  Receive Date: 20121009
  Receipt Date: 20121127
  Transmission Date: 20130627
  Serious: No
  Sender: FDA-Public Use
  Company Number: US-ASTELLAS-2012US009829

PATIENT
  Sex: Male

DRUGS (3)
  1. PROGRAF [Suspect]
     Indication: STEM CELL TRANSPLANT
     Dosage: UNK
     Route: 065
     Dates: start: 201204
  2. PROGRAF [Suspect]
     Indication: MYELOFIBROSIS
  3. PROGRAF [Suspect]
     Indication: ACUTE MYELOID LEUKAEMIA

REACTIONS (1)
  - Off label use [Unknown]
